FAERS Safety Report 10172780 (Version 1)
Quarter: 2014Q2

REPORT INFORMATION
  Report Type: Spontaneous
  Country: US (occurrence: None)
  Receive Date: 20140416
  Receipt Date: 20140416
  Transmission Date: 20141212
  Serious: No
  Sender: FDA-Public Use
  Company Number: 163-POMAL-13124502

PATIENT
  Age: 62 Year
  Sex: Female

DRUGS (1)
  1. POMALYST [Suspect]
     Indication: LYMPHOMA
     Route: 048
     Dates: start: 201311

REACTIONS (2)
  - Abdominal discomfort [None]
  - Eructation [None]
